FAERS Safety Report 8241275-0 (Version None)
Quarter: 2012Q1

REPORT INFORMATION
  Report Type: 
  Country: None (occurrence: None)
  Receive Date: 20120328
  Receipt Date: 20120322
  Transmission Date: 20120608
  Serious: No
  Sender: FDA-Public Use
  Company Number: US-PFIZER INC-2012075038

PATIENT
  Sex: Male
  Weight: 74.83 kg

DRUGS (2)
  1. ZONEGRAN [Concomitant]
     Indication: EPILEPSY
     Dosage: 100 MG, DAILY
  2. DILANTIN [Suspect]
     Indication: EPILEPSY
     Dosage: 5 CAPSULES OF 100MG, DAILY
     Route: 048

REACTIONS (2)
  - DYSARTHRIA [None]
  - TREMOR [None]
